FAERS Safety Report 11409637 (Version 1)
Quarter: 2015Q3

REPORT INFORMATION
  Report Type: Report from Study
  Country: US (occurrence: US)
  Receive Date: 20150824
  Receipt Date: 20150824
  Transmission Date: 20151125
  Serious: Yes (Hospitalization, Other)
  Sender: FDA-Public Use
  Company Number: US-AMGEN-USASL2015085716

PATIENT
  Age: 58 Year
  Sex: Male

DRUGS (4)
  1. ENBREL [Suspect]
     Active Substance: ETANERCEPT
     Indication: PRODUCT USED FOR UNKNOWN INDICATION
     Dosage: UNK
     Route: 065
  2. HUMIRA [Concomitant]
     Active Substance: ADALIMUMAB
  3. REMICADE [Concomitant]
     Active Substance: INFLIXIMAB
  4. PREDNISONE. [Concomitant]
     Active Substance: PREDNISONE

REACTIONS (11)
  - Psoriatic arthropathy [Unknown]
  - Psoriasis [Unknown]
  - Infected bite [Unknown]
  - Headache [Unknown]
  - Osteoarthritis [Unknown]
  - Staphylococcal infection [Unknown]
  - Fibromyalgia [Unknown]
  - Pruritus [Unknown]
  - Herpes zoster [Unknown]
  - Mobility decreased [Unknown]
  - Pain [Unknown]
